FAERS Safety Report 8179442-7 (Version None)
Quarter: 2012Q1

REPORT INFORMATION
  Report Type: 
  Country: None (occurrence: None)
  Receive Date: 20120302
  Receipt Date: 20120227
  Transmission Date: 20120608
  Serious: Yes (Death)
  Sender: FDA-Public Use
  Company Number: CHPA2012US003758

PATIENT
  Age: 36 Year
  Sex: Male

DRUGS (5)
  1. ACETAMINOPHEN [Suspect]
     Dosage: UNK, UNK
  2. ETHANOL [Suspect]
     Dosage: UNK, UNK
  3. COCAINE [Suspect]
     Dosage: UNK, UNK
  4. AMLODIPINE [Suspect]
     Dosage: UNK, UNK
  5. PROPRANOLOL [Suspect]
     Dosage: UNK, UNK

REACTIONS (1)
  - COMPLETED SUICIDE [None]
